FAERS Safety Report 6549318-7 (Version None)
Quarter: 2010Q1

REPORT INFORMATION
  Report Type: 
  Country: None (occurrence: None)
  Receive Date: 20100125
  Receipt Date: 20100114
  Transmission Date: 20100710
  Serious: Yes (Other)
  Sender: FDA-Public Use
  Company Number: GB-JNJFOC-20100104975

PATIENT
  Age: 62 Year
  Sex: Male
  Weight: 92 kg

DRUGS (8)
  1. REMICADE [Suspect]
     Indication: RHEUMATOID ARTHRITIS
     Route: 042
  2. METHOTREXATE [Concomitant]
  3. BUDESONIDE [Concomitant]
  4. CALCICHEW [Concomitant]
  5. ACETAMINOPHEN WITH PROPOXYPHENE HCL TAB [Concomitant]
  6. GLUCOSAMINE [Concomitant]
  7. RABEPRAZOLE SODIUM [Concomitant]
  8. ROFECOXIB [Concomitant]

REACTIONS (1)
  - B-CELL LYMPHOMA [None]
